FAERS Safety Report 8560422 (Version 2)
Quarter: 2012Q4

REPORT INFORMATION
  Report Type: 
  Country: JP (occurrence: JP)
  Receive Date: 20120514
  Receipt Date: 20120831
  Transmission Date: 20130627
  Serious: Yes (Hospitalization)
  Sender: FDA-Public Use
  Company Number: PHHY2012JP040159

PATIENT
  Sex: Female

DRUGS (2)
  1. EXELON PATCH [Suspect]
     Indication: DEMENTIA ALZHEIMER^S TYPE
     Dosage: 13.5 mg, daily
     Route: 062
     Dates: start: 20120425, end: 2012
  2. EXELON PATCH [Suspect]
     Route: 062
     Dates: start: 2012

REACTIONS (1)
  - Cerebral infarction [Recovered/Resolved]
